FAERS Safety Report 18249212 (Version 29)
Quarter: 2025Q1

REPORT INFORMATION
  Report Type: Report from Study
  Country: AT (occurrence: AT)
  Receive Date: 20200910
  Receipt Date: 20250328
  Transmission Date: 20250409
  Serious: Yes (Hospitalization, Other)
  Sender: ROCHE
  Company Number: None

PATIENT
  Age: 66 Year
  Sex: Female
  Weight: 80 kg

DRUGS (137)
  1. XELODA [Suspect]
     Active Substance: CAPECITABINE
     Indication: Breast cancer metastatic
     Dosage: MOST RECENT DOSE PRIOR TO THE EVENT  PORT A CATH INFECTION: 08/JAN/2020
     Route: 048
     Dates: start: 20191002, end: 20200107
  2. XELODA [Suspect]
     Active Substance: CAPECITABINE
     Route: 048
     Dates: start: 20200108, end: 20200421
  3. XELODA [Suspect]
     Active Substance: CAPECITABINE
     Route: 042
     Dates: start: 20201230, end: 20210203
  4. KADCYLA [Suspect]
     Active Substance: ADO-TRASTUZUMAB EMTANSINE
     Indication: Breast cancer metastatic
     Route: 042
     Dates: start: 20190306, end: 20190909
  5. HERCEPTIN [Suspect]
     Active Substance: TRASTUZUMAB
     Indication: Breast cancer metastatic
     Dosage: MOST RECENT DOSE PRIOR TO THE EVENTS: 10/AUG/2017
     Route: 042
     Dates: start: 20170224, end: 20170224
  6. HERCEPTIN [Suspect]
     Active Substance: TRASTUZUMAB
     Route: 042
     Dates: start: 20170519, end: 20170519
  7. HERCEPTIN [Suspect]
     Active Substance: TRASTUZUMAB
     Route: 042
     Dates: start: 20170410, end: 20170427
  8. HERCEPTIN [Suspect]
     Active Substance: TRASTUZUMAB
     Route: 042
     Dates: start: 20170609, end: 20170630
  9. HERCEPTIN [Suspect]
     Active Substance: TRASTUZUMAB
     Route: 042
     Dates: start: 20170720, end: 20170720
  10. HERCEPTIN [Suspect]
     Active Substance: TRASTUZUMAB
     Route: 042
     Dates: start: 20170810, end: 20190213
  11. PERJETA [Suspect]
     Active Substance: PERTUZUMAB
     Indication: Breast cancer metastatic
     Dosage: MOST RECENT DOSE PRIOR TO THE EVENT WORSENING OF BRAIN METASTASES: 17/MAR/2017?MOST RECENT DOSE PRIO
     Route: 042
     Dates: start: 20170224, end: 20170224
  12. PERJETA [Suspect]
     Active Substance: PERTUZUMAB
     Route: 042
     Dates: start: 20200422, end: 20200615
  13. PERJETA [Suspect]
     Active Substance: PERTUZUMAB
     Route: 042
     Dates: start: 20170317, end: 20190213
  14. TYKERB [Suspect]
     Active Substance: LAPATINIB DITOSYLATE
     Indication: Breast cancer metastatic
     Dosage: MOST RECENT DOSE PRIOR TO THE EVENT PORT A CATH INFECTION: 08/JAN/2020
     Route: 048
     Dates: start: 20191002, end: 20200107
  15. TYKERB [Suspect]
     Active Substance: LAPATINIB DITOSYLATE
     Route: 048
     Dates: start: 20200108, end: 20200421
  16. NAVELBINE [Suspect]
     Active Substance: VINORELBINE TARTRATE
     Indication: Breast cancer metastatic
     Route: 042
     Dates: end: 20200722
  17. BLEOMYCIN [Suspect]
     Active Substance: BLEOMYCIN SULFATE
     Indication: Breast cancer metastatic
     Dosage: DRUG WAS DISCONTINUED AS PLANNED NUMBER OF CYCLES COMPLETED.
     Route: 042
  18. BLEOMYCIN [Suspect]
     Active Substance: BLEOMYCIN SULFATE
     Dosage: DRUG WAS DISCONTINUED AS PLANNED NUMBER OF CYCLES COMPLETED.
     Route: 042
     Dates: end: 20210105
  19. TAXOTERE [Suspect]
     Active Substance: DOCETAXEL
     Indication: Breast cancer metastatic
     Dosage: MOST RECENT DOSE PRIOR TO THE EVENTS: 09/JUN/2017
     Route: 042
     Dates: start: 20170224, end: 20170317
  20. TAXOTERE [Suspect]
     Active Substance: DOCETAXEL
     Route: 042
     Dates: start: 20170410, end: 20170427
  21. TAXOTERE [Suspect]
     Active Substance: DOCETAXEL
     Route: 042
     Dates: start: 20170519, end: 20170519
  22. TAXOTERE [Suspect]
     Active Substance: DOCETAXEL
     Route: 042
     Dates: start: 20170609, end: 20170630
  23. TAXOTERE [Suspect]
     Active Substance: DOCETAXEL
     Route: 042
     Dates: start: 20210317, end: 20210428
  24. FASLODEX [Suspect]
     Active Substance: FULVESTRANT
     Indication: Breast cancer metastatic
     Dosage: MOST RECENT DOSE PRIOR TO THE EVENT PORT A CATH INFECTION: 16/NOV/2017
     Route: 058
     Dates: start: 20171002, end: 20171115
  25. FASLODEX [Suspect]
     Active Substance: FULVESTRANT
     Route: 058
     Dates: start: 20171116, end: 20191001
  26. EDOXABAN TOSYLATE [Concomitant]
     Active Substance: EDOXABAN TOSYLATE
     Indication: Product used for unknown indication
     Route: 065
     Dates: start: 20191120, end: 20200608
  27. EDOXABAN TOSYLATE [Concomitant]
     Active Substance: EDOXABAN TOSYLATE
     Indication: Product used for unknown indication
     Route: 065
     Dates: start: 20200613, end: 20210611
  28. EDOXABAN TOSYLATE [Concomitant]
     Active Substance: EDOXABAN TOSYLATE
  29. EDOXABAN TOSYLATE [Concomitant]
     Active Substance: EDOXABAN TOSYLATE
  30. Neriforte [Concomitant]
     Indication: Skin fissures
     Route: 061
     Dates: start: 20200430, end: 20200515
  31. Neriforte [Concomitant]
     Indication: Product used for unknown indication
     Dates: start: 20200430, end: 20200515
  32. Neriforte [Concomitant]
  33. Neriforte [Concomitant]
  34. FENTANYL [Concomitant]
     Active Substance: FENTANYL
     Indication: Product used for unknown indication
     Dosage: UNK
     Route: 062
     Dates: start: 20200515
  35. FENTANYL [Concomitant]
     Active Substance: FENTANYL
     Indication: Product used for unknown indication
  36. FENTANYL [Concomitant]
     Active Substance: FENTANYL
     Dates: start: 20200515
  37. FENTANYL [Concomitant]
     Active Substance: FENTANYL
  38. FENTANYL [Concomitant]
     Active Substance: FENTANYL
  39. CARBOXYMETHYLCELLULOSE SODIUM [Concomitant]
     Active Substance: CARBOXYMETHYLCELLULOSE SODIUM
  40. CARBOXYMETHYLCELLULOSE SODIUM [Concomitant]
     Active Substance: CARBOXYMETHYLCELLULOSE SODIUM
     Indication: Product used for unknown indication
     Route: 065
  41. CARBOXYMETHYLCELLULOSE SODIUM [Concomitant]
     Active Substance: CARBOXYMETHYLCELLULOSE SODIUM
     Indication: Product used for unknown indication
  42. CARBOXYMETHYLCELLULOSE SODIUM [Concomitant]
     Active Substance: CARBOXYMETHYLCELLULOSE SODIUM
  43. CARBOXYMETHYLCELLULOSE SODIUM [Concomitant]
     Active Substance: CARBOXYMETHYLCELLULOSE SODIUM
     Dates: start: 20210105, end: 20210413
  44. CARBOXYMETHYLCELLULOSE SODIUM [Concomitant]
     Active Substance: CARBOXYMETHYLCELLULOSE SODIUM
  45. CARBOXYMETHYLCELLULOSE SODIUM [Concomitant]
     Active Substance: CARBOXYMETHYLCELLULOSE SODIUM
  46. CARBOXYMETHYLCELLULOSE SODIUM [Concomitant]
     Active Substance: CARBOXYMETHYLCELLULOSE SODIUM
  47. CARBOXYMETHYLCELLULOSE SODIUM [Concomitant]
     Active Substance: CARBOXYMETHYLCELLULOSE SODIUM
  48. CARBOXYMETHYLCELLULOSE SODIUM [Concomitant]
     Active Substance: CARBOXYMETHYLCELLULOSE SODIUM
  49. CARBOXYMETHYLCELLULOSE SODIUM [Concomitant]
     Active Substance: CARBOXYMETHYLCELLULOSE SODIUM
  50. CARBOXYMETHYLCELLULOSE SODIUM [Concomitant]
     Active Substance: CARBOXYMETHYLCELLULOSE SODIUM
  51. CARBOXYMETHYLCELLULOSE SODIUM [Concomitant]
     Active Substance: CARBOXYMETHYLCELLULOSE SODIUM
  52. LORAZEPAM [Concomitant]
     Active Substance: LORAZEPAM
  53. LORAZEPAM [Concomitant]
     Active Substance: LORAZEPAM
     Indication: Product used for unknown indication
     Route: 065
  54. LORAZEPAM [Concomitant]
     Active Substance: LORAZEPAM
     Indication: Restlessness
  55. LORAZEPAM [Concomitant]
     Active Substance: LORAZEPAM
     Dates: start: 20210618, end: 20210623
  56. LORAZEPAM [Concomitant]
     Active Substance: LORAZEPAM
  57. LORAZEPAM [Concomitant]
     Active Substance: LORAZEPAM
  58. LORAZEPAM [Concomitant]
     Active Substance: LORAZEPAM
  59. LORAZEPAM [Concomitant]
     Active Substance: LORAZEPAM
  60. PREGABALIN [Concomitant]
     Active Substance: PREGABALIN
     Indication: Product used for unknown indication
     Route: 065
     Dates: start: 20190821, end: 20210616
  61. PREGABALIN [Concomitant]
     Active Substance: PREGABALIN
     Indication: Product used for unknown indication
     Dosage: 25 MG, QD
     Route: 048
     Dates: start: 20170428, end: 20180123
  62. PREGABALIN [Concomitant]
     Active Substance: PREGABALIN
     Dates: start: 20190821, end: 20210616
  63. PREGABALIN [Concomitant]
     Active Substance: PREGABALIN
  64. PREGABALIN [Concomitant]
     Active Substance: PREGABALIN
  65. DROPERIDOL [Concomitant]
     Active Substance: DROPERIDOL
  66. DROPERIDOL [Concomitant]
     Active Substance: DROPERIDOL
     Indication: Gastrointestinal disorder
     Dates: start: 20210612, end: 20210617
  67. DROPERIDOL [Concomitant]
     Active Substance: DROPERIDOL
     Indication: Product used for unknown indication
  68. DROPERIDOL [Concomitant]
     Active Substance: DROPERIDOL
  69. LEVOFLOXACIN [Concomitant]
     Active Substance: LEVOFLOXACIN
     Indication: Product used for unknown indication
     Route: 065
     Dates: start: 20200506, end: 20200512
  70. LEVOFLOXACIN [Concomitant]
     Active Substance: LEVOFLOXACIN
     Indication: Product used for unknown indication
  71. ZOFRAN [Concomitant]
     Active Substance: ONDANSETRON HYDROCHLORIDE
     Route: 065
     Dates: start: 20200506
  72. KCL [Concomitant]
     Active Substance: POTASSIUM CHLORIDE
     Indication: Product used for unknown indication
     Dosage: 600 MG
     Route: 048
     Dates: start: 20170429, end: 20190305
  73. KCL [Concomitant]
     Active Substance: POTASSIUM CHLORIDE
     Indication: Product used for unknown indication
  74. PASPERTIN [Concomitant]
     Route: 065
     Dates: start: 20200506
  75. ACETAMINOPHEN [Concomitant]
     Active Substance: ACETAMINOPHEN
     Indication: Product used for unknown indication
     Route: 065
     Dates: start: 20200506
  76. ACETAMINOPHEN [Concomitant]
     Active Substance: ACETAMINOPHEN
     Indication: Product used for unknown indication
     Dates: start: 20210622, end: 20210622
  77. EUTHYROX [Concomitant]
     Active Substance: LEVOTHYROXINE SODIUM
     Indication: Product used for unknown indication
     Dosage: 75 UG, QD
     Route: 048
     Dates: start: 20170303, end: 20210615
  78. EUTHYROX [Concomitant]
     Active Substance: LEVOTHYROXINE SODIUM
     Indication: Product used for unknown indication
     Dates: start: 20170303, end: 20210615
  79. EUTHYROX [Concomitant]
     Active Substance: LEVOTHYROXINE SODIUM
  80. EUTHYROX [Concomitant]
     Active Substance: LEVOTHYROXINE SODIUM
  81. SILICON [Concomitant]
     Active Substance: SILICON
     Indication: Skin fissures
     Route: 065
     Dates: start: 20200521, end: 20200602
  82. SILICON [Concomitant]
     Active Substance: SILICON
     Indication: Product used for unknown indication
  83. SILICON [Concomitant]
     Active Substance: SILICON
     Indication: Product used for unknown indication
  84. SILICON [Concomitant]
     Active Substance: SILICON
  85. SILICON [Concomitant]
     Active Substance: SILICON
  86. NOVALGIN (AUSTRIA) [Concomitant]
     Route: 065
     Dates: start: 20170329, end: 20180807
  87. SODIUM CACODYLATE [Concomitant]
     Active Substance: SODIUM CACODYLATE
     Indication: Product used for unknown indication
     Dates: start: 20210521, end: 20210616
  88. SODIUM CACODYLATE [Concomitant]
     Active Substance: SODIUM CACODYLATE
     Indication: Dyspnoea
     Route: 065
     Dates: start: 20210616, end: 20210623
  89. SODIUM CACODYLATE [Concomitant]
     Active Substance: SODIUM CACODYLATE
     Indication: Dyspnoea
  90. SODIUM CACODYLATE [Concomitant]
     Active Substance: SODIUM CACODYLATE
     Indication: Dyspnoea
  91. VITAMIN C [Concomitant]
     Active Substance: ASCORBIC ACID
  92. KALIORAL [Concomitant]
     Route: 065
     Dates: start: 20200427, end: 20200428
  93. TAZOBACTAM [Concomitant]
     Active Substance: TAZOBACTAM
     Indication: Streptococcal sepsis
     Route: 065
     Dates: start: 20200423, end: 20200504
  94. TAZOBACTAM [Concomitant]
     Active Substance: TAZOBACTAM
     Indication: Product used for unknown indication
     Dates: start: 20170708, end: 20170710
  95. TAZOBACTAM [Concomitant]
     Active Substance: TAZOBACTAM
     Indication: Streptococcal sepsis
  96. TAZOBACTAM [Concomitant]
     Active Substance: TAZOBACTAM
     Indication: Product used for unknown indication
  97. Scottopect [Concomitant]
     Indication: Cough
     Route: 065
     Dates: start: 20210611, end: 20210613
  98. Scottopect [Concomitant]
     Indication: Product used for unknown indication
  99. Scottopect [Concomitant]
  100. LEUKICHTAN (AUSTRIA) [Concomitant]
     Route: 065
     Dates: start: 20200430, end: 20200515
  101. DEXAMETHASONE [Concomitant]
     Active Substance: DEXAMETHASONE
     Indication: Brain oedema
     Dates: start: 20200422, end: 20200505
  102. RETINOL [Concomitant]
     Active Substance: RETINOL
     Route: 065
     Dates: start: 20170329, end: 20210615
  103. DRONABINOL [Concomitant]
     Active Substance: DRONABINOL
     Indication: Gastrointestinal disorder
     Route: 065
     Dates: start: 20210608, end: 20210612
  104. DRONABINOL [Concomitant]
     Active Substance: DRONABINOL
     Indication: Product used for unknown indication
  105. DRONABINOL [Concomitant]
     Active Substance: DRONABINOL
     Indication: Product used for unknown indication
  106. LOVENOX [Concomitant]
     Active Substance: ENOXAPARIN SODIUM
     Route: 065
     Dates: start: 20170224, end: 20171130
  107. PANTOPRAZOLE SODIUM [Concomitant]
     Active Substance: PANTOPRAZOLE SODIUM
     Route: 065
     Dates: start: 20170722, end: 20180327
  108. PANTOPRAZOLE SODIUM [Concomitant]
     Active Substance: PANTOPRAZOLE SODIUM
     Route: 065
     Dates: start: 20200506, end: 20200519
  109. POLYETHYLENE GLYCOL 3350\POTASSIUM CHLORIDE\SODIUM BICARBONATE\SODIUM [Concomitant]
     Active Substance: POLYETHYLENE GLYCOL 3350\POTASSIUM CHLORIDE\SODIUM BICARBONATE\SODIUM CHLORIDE
     Indication: Product used for unknown indication
     Route: 065
     Dates: start: 20210608, end: 20210616
  110. POLYETHYLENE GLYCOL 3350\POTASSIUM CHLORIDE\SODIUM BICARBONATE\SODIUM [Concomitant]
     Active Substance: POLYETHYLENE GLYCOL 3350\POTASSIUM CHLORIDE\SODIUM BICARBONATE\SODIUM CHLORIDE
     Indication: Product used for unknown indication
     Route: 048
     Dates: start: 20170709, end: 20170709
  111. POLYETHYLENE GLYCOL 3350\POTASSIUM CHLORIDE\SODIUM BICARBONATE\SODIUM [Concomitant]
     Active Substance: POLYETHYLENE GLYCOL 3350\POTASSIUM CHLORIDE\SODIUM BICARBONATE\SODIUM CHLORIDE
  112. POLYETHYLENE GLYCOL 3350\POTASSIUM CHLORIDE\SODIUM BICARBONATE\SODIUM [Concomitant]
     Active Substance: POLYETHYLENE GLYCOL 3350\POTASSIUM CHLORIDE\SODIUM BICARBONATE\SODIUM CHLORIDE
  113. PARACODIN [Concomitant]
  114. ZIEXTENZO [Concomitant]
     Active Substance: PEGFILGRASTIM-BMEZ
  115. HALSET [Concomitant]
  116. DEXAMETHASONE [Concomitant]
     Active Substance: DEXAMETHASONE
     Dates: start: 20171004, end: 20171006
  117. DEXAMETHASONE [Concomitant]
     Active Substance: DEXAMETHASONE
     Dates: start: 20171007, end: 20171008
  118. DEXAMETHASONE [Concomitant]
     Active Substance: DEXAMETHASONE
     Route: 065
     Dates: start: 20170104, end: 20170106
  119. DEXAMETHASONE [Concomitant]
     Active Substance: DEXAMETHASONE
     Route: 065
     Dates: start: 20170107, end: 20170108
  120. FENTANYL [Concomitant]
     Active Substance: FENTANYL
     Route: 050
     Dates: start: 20200515
  121. EMEND [Concomitant]
     Active Substance: APREPITANT
     Route: 065
     Dates: start: 20200428, end: 20200430
  122. Ponveridol [Concomitant]
  123. Ponveridol [Concomitant]
     Indication: Gastrointestinal disorder
     Route: 065
  124. Ponveridol [Concomitant]
     Indication: Product used for unknown indication
     Dates: start: 20210618, end: 20210623
  125. Ponveridol [Concomitant]
  126. Ponveridol [Concomitant]
  127. FUROSEMIDE [Concomitant]
     Active Substance: FUROSEMIDE
     Route: 065
     Dates: start: 20170810, end: 20171213
  128. FUROSEMIDE [Concomitant]
     Active Substance: FUROSEMIDE
     Route: 065
     Dates: start: 20170810, end: 20171213
  129. TEMESTA [Concomitant]
  130. ALPRAZOLAM [Concomitant]
     Active Substance: ALPRAZOLAM
  131. ALPRAZOLAM [Concomitant]
     Active Substance: ALPRAZOLAM
     Indication: Product used for unknown indication
     Route: 065
  132. ALPRAZOLAM [Concomitant]
     Active Substance: ALPRAZOLAM
     Indication: Restlessness
  133. ALPRAZOLAM [Concomitant]
     Active Substance: ALPRAZOLAM
     Dates: start: 20210613, end: 20210615
  134. ALPRAZOLAM [Concomitant]
     Active Substance: ALPRAZOLAM
  135. ALPRAZOLAM [Concomitant]
     Active Substance: ALPRAZOLAM
  136. ALPRAZOLAM [Concomitant]
     Active Substance: ALPRAZOLAM
  137. ALPRAZOLAM [Concomitant]
     Active Substance: ALPRAZOLAM

REACTIONS (14)
  - Streptococcal sepsis [Recovered/Resolved]
  - Pseudomonal sepsis [Recovered/Resolved]
  - Brain oedema [Not Recovered/Not Resolved]
  - Metastases to lymph nodes [Not Recovered/Not Resolved]
  - Vascular device infection [Recovered/Resolved]
  - Nail bed inflammation [Not Recovered/Not Resolved]
  - Skin fissures [Recovered/Resolved]
  - Paronychia [Recovered/Resolved]
  - Eczema [Not Recovered/Not Resolved]
  - Vascular device infection [Recovered/Resolved]
  - Metastases to central nervous system [Not Recovered/Not Resolved]
  - Sepsis [Recovered/Resolved]
  - Nasal mucosal disorder [Recovered/Resolved]
  - Skin fissures [Recovered/Resolved]

NARRATIVE: CASE EVENT DATE: 20191101
